FAERS Safety Report 5843584-9 (Version None)
Quarter: 2008Q3

REPORT INFORMATION
  Report Type: 
  Country: None (occurrence: None)
  Receive Date: 20080813
  Receipt Date: 20080516
  Transmission Date: 20090109
  Serious: No
  Sender: FDA-Public Use
  Company Number: A0728331A

PATIENT
  Age: 83 Year
  Sex: Female

DRUGS (3)
  1. COREG CR [Suspect]
     Indication: DRUG USE FOR UNKNOWN INDICATION
     Dosage: 20MG PER DAY
     Route: 048
     Dates: start: 20080505
  2. UNKNOWN MEDICATION [Concomitant]
  3. PLAVIX [Concomitant]

REACTIONS (1)
  - CARDIAC FLUTTER [None]
